FAERS Safety Report 19483263 (Version 5)
Quarter: 2022Q1

REPORT INFORMATION
  Report Type: Spontaneous
  Country: JP (occurrence: JP)
  Receive Date: 20210701
  Receipt Date: 20220209
  Transmission Date: 20220424
  Serious: Yes (Hospitalization)
  Sender: FDA-Public Use
  Company Number: JP-EISAI-202101758_LEN-HCC_P_1

PATIENT
  Age: 66 Year
  Sex: Male
  Weight: 70 kg

DRUGS (5)
  1. LENVIMA [Suspect]
     Active Substance: LENVATINIB
     Indication: Hepatocellular carcinoma
     Route: 048
     Dates: start: 20190829, end: 20191015
  2. LENVIMA [Suspect]
     Active Substance: LENVATINIB
     Route: 048
     Dates: start: 20191219, end: 20200409
  3. LENVIMA [Suspect]
     Active Substance: LENVATINIB
     Dosage: AN ALTERNATE DOSE OF 4 MG/DAY AND 8 MG/DAY
     Route: 048
     Dates: start: 20200410, end: 20200805
  4. LENVIMA [Suspect]
     Active Substance: LENVATINIB
     Route: 048
     Dates: start: 20200806
  5. MACITENTAN [Concomitant]
     Active Substance: MACITENTAN
     Indication: Product used for unknown indication
     Route: 065
     Dates: start: 20191219

REACTIONS (4)
  - Portopulmonary hypertension [Recovering/Resolving]
  - Proteinuria [Unknown]
  - Hypoproteinaemia [Unknown]
  - Headache [Unknown]

NARRATIVE: CASE EVENT DATE: 20191015
